FAERS Safety Report 6462013-8 (Version None)
Quarter: 2009Q4

REPORT INFORMATION
  Report Type: 
  Country: None (occurrence: None)
  Receive Date: 20091130
  Receipt Date: 20091110
  Transmission Date: 20100525
  Serious: Yes (Hospitalization)
  Sender: FDA-Public Use
  Company Number: PHHY2009MX43751

PATIENT
  Age: 83 Year
  Sex: Female

DRUGS (1)
  1. DIOVAN [Suspect]
     Indication: HYPERTENSION
     Dosage: 2 TABLETS (160 MG) PER DAY
     Route: 048
     Dates: start: 20051001, end: 20080410

REACTIONS (14)
  - AMNESIA [None]
  - ANXIETY DISORDER [None]
  - BALANCE DISORDER [None]
  - CEREBRAL INFARCTION [None]
  - CYSTITIS [None]
  - DIABETES MELLITUS [None]
  - EMBOLISM [None]
  - EYE DISORDER [None]
  - FALL [None]
  - FEAR [None]
  - HEARING IMPAIRED [None]
  - MASS [None]
  - PALPITATIONS [None]
  - TINNITUS [None]
